FAERS Safety Report 5238438-5 (Version None)
Quarter: 2007Q1

REPORT INFORMATION
  Report Type: 
  Country: None (occurrence: None)
  Receive Date: 20070215
  Receipt Date: 20070206
  Transmission Date: 20070707
  Serious: Yes (Other)
  Sender: FDA-Public Use
  Company Number: NLWYE538306FEB07

PATIENT
  Sex: Female
  Weight: 62 kg

DRUGS (5)
  1. EFFEXOR XR [Suspect]
     Dates: start: 20061020, end: 20061114
  2. EFFEXOR XR [Suspect]
     Dates: start: 20061115, end: 20070101
  3. FLURAZEPAM [Concomitant]
     Dates: start: 20061020, end: 20061022
  4. FLURAZEPAM [Concomitant]
     Dates: start: 20061023, end: 20061121
  5. ZOLPIDEM TARTRATE [Concomitant]
     Dates: start: 20061023

REACTIONS (10)
  - DISTURBANCE IN ATTENTION [None]
  - FEELING COLD [None]
  - HYPERHIDROSIS [None]
  - MEMORY IMPAIRMENT [None]
  - MYALGIA [None]
  - ORAL PAIN [None]
  - PHOTOPHOBIA [None]
  - STOMATITIS [None]
  - VISUAL ACUITY REDUCED [None]
  - WEIGHT DECREASED [None]
